FAERS Safety Report 9698020 (Version 1)
Quarter: 2013Q4

REPORT INFORMATION
  Report Type: Spontaneous
  Country: CO (occurrence: CO)
  Receive Date: 20131120
  Receipt Date: 20131120
  Transmission Date: 20140711
  Serious: Yes (Other)
  Sender: FDA-Public Use
  Company Number: CO-MALLINCKRODT-T201304858

PATIENT
  Age: 33 Year
  Sex: Female
  Weight: 58 kg

DRUGS (1)
  1. OPTIRAY [Suspect]
     Indication: COMPUTERISED TOMOGRAM
     Dosage: 100 ML, SINGLE
     Route: 042
     Dates: start: 20131012, end: 20131012

REACTIONS (4)
  - Chest pain [Recovered/Resolved]
  - Nasal obstruction [Recovered/Resolved]
  - Eyelid oedema [Recovered/Resolved]
  - Dyspnoea [Recovered/Resolved]
